FAERS Safety Report 4389064-1 (Version None)
Quarter: 2004Q2

REPORT INFORMATION
  Report Type: 
  Country: None (occurrence: None)
  Receive Date: 20040628
  Receipt Date: 20040618
  Transmission Date: 20050107
  Serious: Yes (Death)
  Sender: FDA-Public Use
  Company Number: K200400904

PATIENT
  Age: 63 Year
  Sex: Male
  Weight: 90 kg

DRUGS (3)
  1. ALTACE [Suspect]
     Indication: BLOOD PRESSURE INCREASED
     Dosage: ORAL
     Route: 048
     Dates: start: 20040607, end: 20040614
  2. AGRYLIN (ANAGRELIDE HYDROCHLORIDE) 0.5MG [Suspect]
     Indication: THROMBOCYTHAEMIA
     Dosage: 1.5 (3X0.5) MG, TID, ORAL
     Route: 048
     Dates: start: 20040101, end: 20040614
  3. KLEXANE (HEPARIN-FRACTION, SODIUM SALT) INJECTION [Concomitant]

REACTIONS (3)
  - CEREBRAL HAEMORRHAGE [None]
  - CEREBRAL INFARCTION [None]
  - THALAMUS HAEMORRHAGE [None]
